FAERS Safety Report 6956668-9 (Version None)
Quarter: 2010Q3

REPORT INFORMATION
  Report Type: 
  Country: None (occurrence: None)
  Receive Date: 20100830
  Receipt Date: 20100726
  Transmission Date: 20110219
  Serious: No
  Sender: FDA-Public Use
  Company Number: US-PFIZER INC-2010094172

PATIENT
  Sex: Male
  Weight: 79.365 kg

DRUGS (3)
  1. GENOTROPIN [Suspect]
     Indication: OFF LABEL USE
     Dosage: UNK
  2. GENOTROPIN [Suspect]
     Indication: HIV INFECTION
  3. TESTOSTERONE [Concomitant]
     Dosage: UNK

REACTIONS (1)
  - THERAPEUTIC RESPONSE UNEXPECTED [None]
